FAERS Safety Report 9285547 (Version 1)
Quarter: 2013Q2

REPORT INFORMATION
  Report Type: Spontaneous
  Country: US (occurrence: None)
  Receive Date: 20130510
  Receipt Date: 20130510
  Transmission Date: 20140414
  Serious: Yes (Other)
  Sender: FDA-Public Use
  Company Number: None

PATIENT
  Age: 59 Year
  Sex: Female
  Weight: 68.49 kg

DRUGS (1)
  1. DYSPORT [Suspect]
     Indication: SKIN WRINKLING
     Dates: start: 20130424, end: 20130424

REACTIONS (1)
  - Eyelid ptosis [None]
